FAERS Safety Report 7469571-5 (Version None)
Quarter: 2011Q2

REPORT INFORMATION
  Report Type: 
  Country: None (occurrence: None)
  Receive Date: 20110510
  Receipt Date: 20110503
  Transmission Date: 20111010
  Serious: Yes (Life-Threatening, Other)
  Sender: FDA-Public Use
  Company Number: PHHY2011IN37121

PATIENT

DRUGS (3)
  1. TASIGNA [Suspect]
     Indication: GASTROINTESTINAL STROMAL TUMOUR
     Dosage: 400 MG, BID
     Route: 048
  2. GLEEVEC [Suspect]
     Indication: GASTROINTESTINAL STROMAL TUMOUR
     Dosage: 400 MG, OD
     Route: 048
  3. GLEEVEC [Suspect]
     Dosage: UNK

REACTIONS (4)
  - SENSORY LOSS [None]
  - BLOOD BILIRUBIN INCREASED [None]
  - AMNESIA [None]
  - CARDIAC ARREST [None]
